FAERS Safety Report 19444881 (Version 2)
Quarter: 2022Q1

REPORT INFORMATION
  Report Type: Spontaneous
  Country: JP (occurrence: JP)
  Receive Date: 20210621
  Receipt Date: 20220301
  Transmission Date: 20220423
  Serious: Yes (Hospitalization)
  Sender: FDA-Public Use
  Company Number: JP-ELI_LILLY_AND_COMPANY-JP202008010802

PATIENT
  Age: 75 Year
  Sex: Female
  Weight: 55.2 kg

DRUGS (26)
  1. ADCIRCA [Suspect]
     Active Substance: TADALAFIL
     Indication: Pulmonary arterial hypertension
     Dosage: 40 MG, DAILY
     Route: 065
     Dates: start: 20180724
  2. UPTRAVI [Suspect]
     Active Substance: SELEXIPAG
     Indication: Pulmonary arterial hypertension
     Dosage: 0.2 MG, DAILY
     Route: 048
     Dates: start: 20190131, end: 20190206
  3. UPTRAVI [Suspect]
     Active Substance: SELEXIPAG
     Dosage: 0.4 MG, DAILY
     Route: 048
     Dates: start: 20190207, end: 20190410
  4. UPTRAVI [Suspect]
     Active Substance: SELEXIPAG
     Dosage: 0.8 MG, DAILY
     Route: 048
     Dates: start: 20190411, end: 20190605
  5. UPTRAVI [Suspect]
     Active Substance: SELEXIPAG
     Dosage: 1.0 MG, DAILY
     Route: 048
     Dates: start: 20190606, end: 20190626
  6. UPTRAVI [Suspect]
     Active Substance: SELEXIPAG
     Dosage: 0.8 MG, DAILY
     Route: 048
     Dates: start: 20190627, end: 20201014
  7. UPTRAVI [Suspect]
     Active Substance: SELEXIPAG
     Dosage: 0.6 MG, BID
     Route: 048
     Dates: start: 20201015, end: 20210114
  8. UPTRAVI [Suspect]
     Active Substance: SELEXIPAG
     Dosage: 0.8 MG, BID
     Route: 048
     Dates: start: 20210115, end: 20210303
  9. UPTRAVI [Suspect]
     Active Substance: SELEXIPAG
     Dosage: 1 MG, BID
     Route: 048
     Dates: start: 20210504, end: 20210505
  10. UPTRAVI [Suspect]
     Active Substance: SELEXIPAG
     Dosage: 0.8 MG, BID
     Route: 048
     Dates: start: 20210506
  11. AZOSEMIDE [Concomitant]
     Active Substance: AZOSEMIDE
     Indication: Product used for unknown indication
     Dosage: 30 MG, UNKNOWN
     Route: 065
     Dates: start: 20180330, end: 20210203
  12. AZOSEMIDE [Concomitant]
     Active Substance: AZOSEMIDE
     Dosage: 60 MG, UNKNOWN
     Route: 065
     Dates: start: 20210204
  13. ROSUVASTATIN [Concomitant]
     Active Substance: ROSUVASTATIN
     Indication: Dyslipidaemia
     Dosage: 2.5 MG, UNKNOWN
     Route: 065
     Dates: start: 20180725
  14. AMBRISENTAN [Concomitant]
     Active Substance: AMBRISENTAN
     Indication: Pulmonary arterial hypertension
     Dosage: 5 MG, UNKNOWN
     Route: 065
     Dates: start: 20180724, end: 20210724
  15. EDOXABAN TOSYLATE [Concomitant]
     Active Substance: EDOXABAN TOSYLATE
     Indication: Product used for unknown indication
     Dosage: 30 MG, UNKNOWN
     Route: 065
     Dates: start: 20180724, end: 20210121
  16. HEPARINOID [Concomitant]
     Indication: Scleroderma
     Dosage: UNK UNK, UNKNOWN
     Route: 065
     Dates: start: 20181025
  17. LOCOID [Concomitant]
     Active Substance: HYDROCORTISONE BUTYRATE
     Indication: Scleroderma
     Dosage: UNK UNK, UNKNOWN
     Route: 065
     Dates: start: 20190221
  18. SLOW-K [Concomitant]
     Active Substance: POTASSIUM CHLORIDE
     Indication: Product used for unknown indication
     Dosage: 2400 MG, UNKNOWN
     Route: 065
     Dates: start: 20180725, end: 20190313
  19. BETAMETHASONE BUTYRATE PROPIONATE [Concomitant]
     Active Substance: BETAMETHASONE BUTYRATE PROPIONATE
     Indication: Scleroderma
     Dosage: UNK UNK, UNKNOWN
     Dates: start: 20190131
  20. POTASSIUM CHLORIDE [Concomitant]
     Active Substance: POTASSIUM CHLORIDE
     Indication: Prophylaxis
     Dosage: 2 G
     Dates: start: 20190314
  21. BETAMETHASONE SODIUM PHOSPHATE [Concomitant]
     Active Substance: BETAMETHASONE SODIUM PHOSPHATE
     Indication: Scleroderma
     Dosage: UNK UNK, UNKNOWN
     Dates: start: 20201210
  22. PROTOPIC [Concomitant]
     Active Substance: TACROLIMUS
     Indication: Scleroderma
     Dosage: UNK UNK, UNKNOWN
     Dates: start: 20200716, end: 20210415
  23. DELGOCITINIB [Concomitant]
     Active Substance: DELGOCITINIB
     Indication: Scleroderma
     Dosage: UNK UNK, UNKNOWN
     Dates: start: 20210416
  24. OPSUMIT [Concomitant]
     Active Substance: MACITENTAN
     Indication: Pulmonary arterial hypertension
     Dosage: 10 MG
     Dates: start: 20210715
  25. BETAMETHASONE BUTYRATE PROPIONATE [Concomitant]
     Active Substance: BETAMETHASONE BUTYRATE PROPIONATE
     Indication: Scleroderma
     Dosage: UNK UNK, UNKNOWN
     Dates: start: 20210819
  26. CLOBETASOL [Concomitant]
     Active Substance: CLOBETASOL
     Indication: Scleroderma
     Dosage: UNK UNK, UNKNOWN
     Dates: start: 20220106

REACTIONS (6)
  - Iron deficiency anaemia [Recovering/Resolving]
  - Large intestine polyp [Recovered/Resolved]
  - Diarrhoea [Recovered/Resolved]
  - Diarrhoea [Recovered/Resolved]
  - Diarrhoea [Recovered/Resolved]
  - Diarrhoea [Recovering/Resolving]

NARRATIVE: CASE EVENT DATE: 20190221
